FAERS Safety Report 9412654 (Version 1)
Quarter: 2013Q3

REPORT INFORMATION
  Report Type: Spontaneous
  Country: IT (occurrence: IT)
  Receive Date: 20130722
  Receipt Date: 20130722
  Transmission Date: 20140515
  Serious: Yes (Other)
  Sender: FDA-Public Use
  Company Number: IT-ROCHE-1202739

PATIENT
  Age: 67 Year
  Sex: Male
  Weight: 71 kg

DRUGS (8)
  1. XELODA [Suspect]
     Indication: COLON CANCER
     Route: 048
     Dates: start: 20121102, end: 20121116
  2. AVASTIN [Suspect]
     Indication: COLON CANCER
     Route: 042
     Dates: start: 20121105, end: 20121105
  3. OXALIPLATIN HOSPIRA [Suspect]
     Indication: COLON CANCER
     Route: 042
     Dates: start: 20121102, end: 20121102
  4. ESOMEPRAZOLE [Concomitant]
  5. CLEXANE [Concomitant]
  6. SOLDESAM [Concomitant]
  7. RANIDIL [Concomitant]
     Indication: COLON CANCER
     Route: 042
     Dates: start: 20121102, end: 20121102
  8. ONDANSETRON HIKMA [Concomitant]

REACTIONS (4)
  - Conjunctivitis [Recovering/Resolving]
  - Diarrhoea [Recovering/Resolving]
  - Dyspnoea [Recovering/Resolving]
  - Paraesthesia [Recovering/Resolving]
